FAERS Safety Report 9638240 (Version 3)
Quarter: 2014Q2

REPORT INFORMATION
  Report Type: Spontaneous
  Country: US (occurrence: US)
  Receive Date: 20131022
  Receipt Date: 20140425
  Transmission Date: 20141212
  Serious: Yes (Hospitalization, Other)
  Sender: FDA-Public Use
  Company Number: US-B.I. PHARMACEUTICALS,INC./RIDGEFIELD-2013-BI-33476BP

PATIENT
  Sex: Male
  Weight: 90.72 kg

DRUGS (10)
  1. PRADAXA [Suspect]
     Indication: ATRIAL FIBRILLATION
     Dosage: 150 MG
     Route: 048
     Dates: start: 20110728, end: 20111231
  2. PRADAXA [Suspect]
     Indication: CARDIAC FAILURE CONGESTIVE
     Route: 065
     Dates: start: 20120508, end: 201206
  3. ZYLOPRIM [Concomitant]
     Dosage: 200 MG
     Route: 048
  4. INDOCIN [Concomitant]
     Route: 048
  5. ZAROXOLYN [Concomitant]
     Dosage: 2.5 MG
     Route: 048
  6. ADULT CHEW VITAMIN [Concomitant]
     Route: 048
  7. ZOCOR [Concomitant]
     Dosage: 20 MG
     Route: 048
  8. FLOMAX [Concomitant]
     Dosage: 0.4 MG
     Route: 048
  9. RESTORIL [Concomitant]
     Route: 048
  10. DEMADEX [Concomitant]
     Dosage: 40 MG
     Route: 048

REACTIONS (7)
  - Lower gastrointestinal haemorrhage [Unknown]
  - Anaemia [Unknown]
  - Metabolic encephalopathy [Unknown]
  - Renal failure acute [Unknown]
  - Coagulation factor increased [Unknown]
  - Contusion [Unknown]
  - Ecchymosis [Unknown]
